FAERS Safety Report 19811230 (Version 3)
Quarter: 2022Q1

REPORT INFORMATION
  Report Type: Report from Study
  Country: BE (occurrence: BE)
  Receive Date: 20210910
  Receipt Date: 20220125
  Transmission Date: 20220423
  Serious: Yes (Death, Life-Threatening, Hospitalization, Other)
  Sender: FDA-Public Use
  Company Number: BE-BRISTOL-MYERS SQUIBB COMPANY-BMS-2021-089584

PATIENT
  Age: 33 Year
  Sex: Male

DRUGS (10)
  1. NIVOLUMAB [Suspect]
     Active Substance: NIVOLUMAB
     Indication: Adenocarcinoma of colon
     Dosage: FOR 10 MONTHS
     Route: 065
     Dates: start: 201809, end: 201907
  2. IPILIMUMAB [Suspect]
     Active Substance: IPILIMUMAB
     Indication: Adenocarcinoma of colon
     Dosage: FOR 10 MONTHS
     Route: 065
     Dates: start: 201809, end: 201907
  3. FLUOROURACIL [Suspect]
     Active Substance: FLUOROURACIL
     Indication: Adenocarcinoma of colon
     Dosage: UNK
     Route: 041
     Dates: start: 201306, end: 201311
  4. FLUOROURACIL [Suspect]
     Active Substance: FLUOROURACIL
     Dosage: UNK
     Route: 041
     Dates: start: 2015, end: 2015
  5. PEMBROLIZUMAB [Suspect]
     Active Substance: PEMBROLIZUMAB
     Indication: Adenocarcinoma of colon
     Dosage: 35 CYCLES RECEIVED
     Route: 041
     Dates: start: 201512, end: 201711
  6. BEVACIZUMAB [Suspect]
     Active Substance: BEVACIZUMAB
     Indication: Adenocarcinoma of colon
     Dosage: UNK
     Route: 065
     Dates: start: 201405, end: 201510
  7. IRINOTECAN HYDROCHLORIDE [Suspect]
     Active Substance: IRINOTECAN HYDROCHLORIDE
     Indication: Adenocarcinoma of colon
     Dosage: UNK
     Route: 041
     Dates: start: 201405, end: 201504
  8. OXALIPLATIN [Suspect]
     Active Substance: OXALIPLATIN
     Indication: Adenocarcinoma of colon
     Dosage: UNK
     Route: 041
     Dates: start: 201306, end: 2013
  9. LEUCOVORIN CALCIUM [Suspect]
     Active Substance: LEUCOVORIN CALCIUM
     Indication: Adenocarcinoma of colon
     Dosage: UNK
     Route: 041
     Dates: start: 201306, end: 201311
  10. LEUCOVORIN CALCIUM [Suspect]
     Active Substance: LEUCOVORIN CALCIUM
     Dosage: UNK
     Route: 041
     Dates: start: 2015, end: 2015

REACTIONS (12)
  - Wound complication [Fatal]
  - Fistula of small intestine [Fatal]
  - Soft tissue infection [Fatal]
  - Back injury [Fatal]
  - Streptococcal infection [Unknown]
  - Staphylococcal infection [Unknown]
  - Lactobacillus infection [Unknown]
  - Device related sepsis [Unknown]
  - Klebsiella infection [Unknown]
  - Gastrointestinal toxicity [Unknown]
  - Staphylococcal sepsis [Unknown]
  - Escherichia infection [Unknown]

NARRATIVE: CASE EVENT DATE: 20190101
